FAERS Safety Report 8173295-9 (Version None)
Quarter: 2012Q1

REPORT INFORMATION
  Report Type: 
  Country: None (occurrence: None)
  Receive Date: 20120104
  Receipt Date: 20111101
  Transmission Date: 20120608
  Serious: No
  Sender: FDA-Public Use
  Company Number: 2011HGS-002569

PATIENT
  Age: 43 Year
  Sex: Female
  Weight: 74 kg

DRUGS (1)
  1. BENLYSTA [Suspect]
     Indication: RHEUMATOID ARTHRITIS
     Dosage: 727 MG, INTRAVENOUS DRIP
     Route: 041
     Dates: start: 20110920, end: 20110920

REACTIONS (3)
  - ORAL DISCOMFORT [None]
  - BACK PAIN [None]
  - NAUSEA [None]
